FAERS Safety Report 10400344 (Version 2)
Quarter: 2014Q3

REPORT INFORMATION
  Report Type: Spontaneous
  Country: US (occurrence: US)
  Receive Date: 20140821
  Receipt Date: 20140821
  Transmission Date: 20150326
  Serious: Yes (Other)
  Sender: FDA-Public Use
  Company Number: US-BAUSCH-SYM-2014-22376

PATIENT
  Age: 73 Year
  Sex: Male
  Weight: 81.72 kg

DRUGS (1)
  1. FLUOROURACIL. [Suspect]
     Active Substance: FLUOROURACIL
     Indication: SKIN CANCER
     Route: 061
     Dates: start: 20140606

REACTIONS (2)
  - Drug ineffective [Not Recovered/Not Resolved]
  - Application site discolouration [Unknown]

NARRATIVE: CASE EVENT DATE: 20140606
